FAERS Safety Report 23443783 (Version 1)
Quarter: 2024Q1

REPORT INFORMATION
  Report Type: Spontaneous
  Country: US (occurrence: None)
  Receive Date: 20240124
  Receipt Date: 20240124
  Transmission Date: 20240409
  Serious: Yes (Life-Threatening, Disabling)
  Sender: FDA-Public Use
  Company Number: None

PATIENT
  Age: 38 Year
  Sex: Female
  Weight: 62.1 kg

DRUGS (6)
  1. TIZANIDINE HYDROCHLORIDE [Suspect]
     Active Substance: TIZANIDINE HYDROCHLORIDE
     Indication: Migraine
     Dosage: FREQUENCY : AT BEDTIME;?
     Route: 048
     Dates: start: 20240123, end: 20240123
  2. NUVARING [Concomitant]
     Active Substance: ETHINYL ESTRADIOL\ETONOGESTREL
  3. Women^s One-a-Day Multi-vitamin [Concomitant]
  4. MAGNESIUM [Concomitant]
     Active Substance: MAGNESIUM
  5. RIBOFLAVIN [Concomitant]
     Active Substance: RIBOFLAVIN
  6. HERBALS [Concomitant]
     Active Substance: HERBALS

REACTIONS (6)
  - Dysarthria [None]
  - Dry mouth [None]
  - Hallucination [None]
  - Salivary hypersecretion [None]
  - Dysstasia [None]
  - Heart rate decreased [None]

NARRATIVE: CASE EVENT DATE: 20240123
